FAERS Safety Report 11962237 (Version 1)
Quarter: 2016Q1

REPORT INFORMATION
  Report Type: Spontaneous
  Country: US (occurrence: US)
  Receive Date: 20160126
  Receipt Date: 20160126
  Transmission Date: 20160526
  Serious: Yes (Hospitalization)
  Sender: FDA-Public Use
  Company Number: US-ACTAVIS-2016-00735

PATIENT
  Sex: Female

DRUGS (4)
  1. PREDNISONE. [Suspect]
     Active Substance: PREDNISONE
     Indication: HEADACHE
     Dosage: UNK, UNKNOWN
     Route: 048
     Dates: start: 201501, end: 201511
  2. PREDNISONE. [Suspect]
     Active Substance: PREDNISONE
     Indication: HEADACHE
     Dosage: 2 INJECTIONS
     Route: 030
     Dates: start: 201501
  3. PREDNISONE. [Suspect]
     Active Substance: PREDNISONE
     Indication: SINUS DISORDER
  4. PREDNISONE. [Suspect]
     Active Substance: PREDNISONE
     Indication: SINUS DISORDER

REACTIONS (5)
  - Back pain [Not Recovered/Not Resolved]
  - Pulmonary embolism [Recovered/Resolved]
  - Thrombosis [Recovered/Resolved]
  - Chest pain [Not Recovered/Not Resolved]
  - Blood glucose increased [Unknown]
